FAERS Safety Report 9386024 (Version 2)
Quarter: 2013Q3

REPORT INFORMATION
  Report Type: Report from Study
  Country: JP (occurrence: JP)
  Receive Date: 20130705
  Receipt Date: 20130827
  Transmission Date: 20140515
  Serious: Yes (Other)
  Sender: FDA-Public Use
  Company Number: JP-MERCK-1201USA00182

PATIENT
  Sex: Female
  Weight: 56 kg

DRUGS (4)
  1. VANIPREVIR [Suspect]
     Indication: CHRONIC HEPATITIS C
     Dosage: 300 MG, BID
     Dates: start: 20110930
  2. RIBAVIRIN [Suspect]
     Indication: CHRONIC HEPATITIS C
     Dates: start: 20110930
  3. PEGINTERFERON ALFA-2B [Suspect]
     Indication: CHRONIC HEPATITIS C
     Dosage: UNK UNK, QW
     Dates: start: 20110930
  4. MAGNESIUM OXIDE [Concomitant]
     Indication: CONSTIPATION
     Dosage: 3, QD
     Route: 048
     Dates: start: 20110510

REACTIONS (2)
  - Abortion induced [Recovered/Resolved]
  - Exposure via body fluid [Recovered/Resolved]
